FAERS Safety Report 25251350 (Version 4)
Quarter: 2025Q4

REPORT INFORMATION
  Report Type: Spontaneous
  Country: JP (occurrence: JP)
  Receive Date: 20250429
  Receipt Date: 20251112
  Transmission Date: 20260117
  Serious: Yes (Life-Threatening, Hospitalization, Disabling, Other)
  Sender: EISAI
  Company Number: JP-Eisai-202501147_LEN-EC_P_1

PATIENT
  Age: 71 Year
  Sex: Female
  Weight: 55 kg

DRUGS (7)
  1. LENVIMA [Suspect]
     Active Substance: LENVATINIB
     Indication: Endometrial cancer
     Dosage: DOSE AND FREQUENCY UNKNOWN
     Route: 048
     Dates: start: 20241101, end: 20250412
  2. LENVIMA [Suspect]
     Active Substance: LENVATINIB
     Dosage: DOSE AND FREQUENCY UNKNOWN
     Route: 048
  3. KEYTRUDA [Suspect]
     Active Substance: PEMBROLIZUMAB
     Indication: Endometrial cancer
     Route: 041
     Dates: start: 20241101, end: 20250314
  4. DEXAMETHASONE [Concomitant]
     Active Substance: DEXAMETHASONE
     Indication: Immune thrombocytopenia
     Dosage: FREQUENCY UNKNOWN
  5. HEPARIN [Concomitant]
     Active Substance: HEPARIN SODIUM
     Indication: Immune thrombocytopenia
     Dosage: DOSE AND FREQUENCY UNKNOWN
  6. DALTEPARIN SODIUM [Concomitant]
     Active Substance: DALTEPARIN SODIUM
     Indication: Immune thrombocytopenia
     Dosage: DOSE AND FREQUENCY UNKNOWN
  7. ACYCLOVIR [Concomitant]
     Active Substance: ACYCLOVIR
     Indication: Varicella virus test positive
     Dosage: DOSE AND FREQUENCY UNKNOWN

REACTIONS (4)
  - Haemophagocytic lymphohistiocytosis [Recovered/Resolved with Sequelae]
  - Sepsis [Recovering/Resolving]
  - Cytokine release syndrome [Recovering/Resolving]
  - Osteoarthritis [Unknown]

NARRATIVE: CASE EVENT DATE: 20250401
